FAERS Safety Report 8103845-X (Version None)
Quarter: 2012Q1

REPORT INFORMATION
  Report Type: 
  Country: None (occurrence: None)
  Receive Date: 20120201
  Receipt Date: 20120120
  Transmission Date: 20120608
  Serious: Yes (Hospitalization, Other)
  Sender: FDA-Public Use
  Company Number: PHHY2012DE006019

PATIENT
  Age: 32 Year
  Sex: Female
  Weight: 69 kg

DRUGS (3)
  1. RISPERDAL CONSTA [Concomitant]
     Indication: SCHIZOPHRENIA, PARANOID TYPE
     Dosage: 50 MG, UNK
     Route: 030
  2. LEVOTHYROXINE SODIUM [Concomitant]
     Dosage: 25 UG, UNK
     Route: 048
  3. CLOZAPINE [Suspect]
     Indication: SCHIZOPHRENIA, PARANOID TYPE
     Dosage: 250 MG, UNK
     Route: 048

REACTIONS (1)
  - APPENDICITIS PERFORATED [None]
